FAERS Safety Report 21806887 (Version 1)
Quarter: 2023Q1

REPORT INFORMATION
  Report Type: Spontaneous
  Country: BR (occurrence: BR)
  Receive Date: 20230102
  Receipt Date: 20230102
  Transmission Date: 20230418
  Serious: Yes (Other)
  Sender: FDA-Public Use
  Company Number: BR-JAZZ-2022-BR-038768

PATIENT
  Age: 29 Year

DRUGS (1)
  1. ASPARAGINASE [Suspect]
     Active Substance: ASPARAGINASE
     Indication: Acute lymphocytic leukaemia

REACTIONS (6)
  - Deep vein thrombosis [Recovering/Resolving]
  - Hepatitis cholestatic [Recovering/Resolving]
  - Septic shock [Recovering/Resolving]
  - Blood pressure decreased [Recovering/Resolving]
  - Hepatic encephalopathy [Recovering/Resolving]
  - Blood bilirubin increased [Unknown]
